FAERS Safety Report 7620056-2 (Version None)
Quarter: 2011Q3

REPORT INFORMATION
  Report Type: 
  Country: None (occurrence: None)
  Receive Date: 20110719
  Receipt Date: 20110712
  Transmission Date: 20111222
  Serious: No
  Sender: FDA-Public Use
  Company Number: US-PFIZER INC-2011158118

PATIENT
  Sex: Female

DRUGS (4)
  1. PREVACID [Concomitant]
     Dosage: UNK
  2. PROZAC [Concomitant]
     Dosage: 40 MG, UNK
  3. GEODON [Suspect]
     Dosage: 60 UNK, 2X/DAY
  4. VITAMINS WITH MINERALS [Concomitant]
     Dosage: UNK

REACTIONS (5)
  - NAUSEA [None]
  - INSOMNIA [None]
  - DIARRHOEA [None]
  - TREMOR [None]
  - WITHDRAWAL SYNDROME [None]
